FAERS Safety Report 20704696 (Version 1)
Quarter: 2022Q2

REPORT INFORMATION
  Report Type: Spontaneous
  Country: US (occurrence: None)
  Receive Date: 20220412
  Receipt Date: 20220412
  Transmission Date: 20220720
  Serious: Yes (Hospitalization)
  Sender: FDA-Public Use
  Company Number: None

PATIENT

DRUGS (1)
  1. HYDROXYUREA [Suspect]
     Active Substance: HYDROXYUREA

REACTIONS (6)
  - Stomatitis [None]
  - Fatigue [None]
  - Dyspnoea exertional [None]
  - Migraine [None]
  - Depression [None]
  - Rheumatoid arthritis [None]
